FAERS Safety Report 6803917-3 (Version None)
Quarter: 2010Q2

REPORT INFORMATION
  Report Type: 
  Country: None (occurrence: None)
  Receive Date: 20100628
  Receipt Date: 20060608
  Transmission Date: 20101027
  Serious: No
  Sender: FDA-Public Use
  Company Number: US-PFIZER INC-2006073854

PATIENT
  Sex: Male
  Weight: 120.66 kg

DRUGS (5)
  1. SUTENT [Suspect]
     Indication: RENAL CELL CARCINOMA
     Dosage: CYCLIC DAILY 4WEEKS ON 2WEEKS OFF
     Route: 048
     Dates: start: 20060522
  2. NORVASC [Concomitant]
     Indication: BLOOD PRESSURE
     Route: 065
  3. PRAVACHOL [Concomitant]
     Indication: BLOOD CHOLESTEROL
     Route: 065
  4. GEMFIBROZIL [Concomitant]
     Indication: BLOOD CHOLESTEROL
     Route: 065
  5. FOLGARD [Concomitant]
     Route: 065

REACTIONS (1)
  - NAIL DISCOLOURATION [None]
